FAERS Safety Report 18377621 (Version 1)
Quarter: 2020Q4

REPORT INFORMATION
  Report Type: Spontaneous
  Country: CA (occurrence: CA)
  Receive Date: 20201013
  Receipt Date: 20201013
  Transmission Date: 20210114
  Serious: Yes (Other)
  Sender: FDA-Public Use
  Company Number: CA-LUPIN PHARMACEUTICALS INC.-2020-03280

PATIENT
  Age: 15 Year
  Sex: Female

DRUGS (5)
  1. CARBAMAZEPINE. [Suspect]
     Active Substance: CARBAMAZEPINE
     Indication: FOCAL DYSCOGNITIVE SEIZURES
     Dosage: UNK
     Route: 065
  2. LEVETIRACETAM. [Suspect]
     Active Substance: LEVETIRACETAM
     Indication: FOCAL DYSCOGNITIVE SEIZURES
     Dosage: UNK
     Route: 065
  3. PHENYTOIN SODIUM. [Suspect]
     Active Substance: PHENYTOIN SODIUM
     Indication: FOCAL DYSCOGNITIVE SEIZURES
     Dosage: UNK
     Route: 065
  4. VALPROATE [Suspect]
     Active Substance: VALPROIC ACID
     Indication: FOCAL DYSCOGNITIVE SEIZURES
     Dosage: UNK
     Route: 065
  5. LAMOTRIGINE. [Suspect]
     Active Substance: LAMOTRIGINE
     Indication: FOCAL DYSCOGNITIVE SEIZURES
     Dosage: UNK
     Route: 065

REACTIONS (1)
  - Treatment failure [Unknown]
